FAERS Safety Report 25467595 (Version 1)
Quarter: 2025Q2

REPORT INFORMATION
  Report Type: Spontaneous
  Country: US (occurrence: US)
  Receive Date: 20250623
  Receipt Date: 20250623
  Transmission Date: 20250716
  Serious: Yes (Hospitalization, Other)
  Sender: BRISTOL-MYERS SQUIBB COMPANY
  Company Number: US-EXELIXIS-EXL-2025-008566

PATIENT
  Age: 42 Year
  Sex: Male

DRUGS (6)
  1. OPDIVO [Suspect]
     Active Substance: NIVOLUMAB
     Indication: Renal cancer
     Route: 042
  2. CABOMETYX [Suspect]
     Active Substance: CABOZANTINIB S-MALATE
     Indication: Renal cancer
  3. CABOMETYX [Suspect]
     Active Substance: CABOZANTINIB S-MALATE
  4. CABOMETYX [Suspect]
     Active Substance: CABOZANTINIB S-MALATE
     Dosage: 20 MG, QD
  5. CABOMETYX [Suspect]
     Active Substance: CABOZANTINIB S-MALATE
     Dosage: 20MG QD FOR 2 DAYS,
     Route: 048
  6. CABOMETYX [Suspect]
     Active Substance: CABOZANTINIB S-MALATE
     Dosage: THEN 40MG QD THEN REPEAT
     Route: 048

REACTIONS (8)
  - Vomiting [Unknown]
  - Hypovolaemic shock [Unknown]
  - Clostridium difficile infection [Unknown]
  - Colitis ulcerative [Unknown]
  - Malignant neoplasm progression [Unknown]
  - Blood thyroid stimulating hormone abnormal [Unknown]
  - Diarrhoea [Unknown]
  - Weight decreased [Unknown]
